FAERS Safety Report 15586582 (Version 1)
Quarter: 2018Q4

REPORT INFORMATION
  Report Type: Spontaneous
  Country: US (occurrence: US)
  Receive Date: 20181101
  Receipt Date: 20181101
  Transmission Date: 20190205
  Serious: No
  Sender: FDA-Public Use
  Company Number: None

PATIENT
  Age: 73 Year
  Sex: Female
  Weight: 82.55 kg

DRUGS (2)
  1. SODIUM CHLORIDE 0.9% SOLUTION [Suspect]
     Active Substance: SODIUM CHLORIDE
     Indication: RHEUMATOID ARTHRITIS
     Dates: start: 201809
  2. REMICADE [Suspect]
     Active Substance: INFLIXIMAB
     Indication: RHEUMATOID ARTHRITIS
     Dosage: ?          OTHER FREQUENCY:WEEK 1,2 AND 6;?
     Route: 042
     Dates: start: 201804

REACTIONS (3)
  - Musculoskeletal pain [None]
  - Joint range of motion decreased [None]
  - Arthralgia [None]
